FAERS Safety Report 4333151-0 (Version None)
Quarter: 2004Q2

REPORT INFORMATION
  Report Type: 
  Country: None (occurrence: None)
  Receive Date: 20040402
  Receipt Date: 20040402
  Transmission Date: 20050107
  Serious: Yes (Other)
  Sender: FDA-Public Use
  Company Number: None

PATIENT
  Age: 35 Year
  Sex: Male
  Weight: 68.0396 kg

DRUGS (2)
  1. EFFEXOR XR [Suspect]
     Indication: ANXIETY
     Dosage: 150MG DAY ORAL
     Route: 048
     Dates: start: 20030101, end: 20040301
  2. EFFEXOR XR [Suspect]
     Indication: DEPRESSION
     Dosage: 150MG DAY ORAL
     Route: 048
     Dates: start: 20030101, end: 20040301

REACTIONS (19)
  - ACTIVITIES OF DAILY LIVING IMPAIRED [None]
  - AGITATION [None]
  - ANXIETY [None]
  - COORDINATION ABNORMAL [None]
  - DEHYDRATION [None]
  - DEPRESSION [None]
  - DRUG WITHDRAWAL SYNDROME [None]
  - HYPERTENSION [None]
  - HYPOMANIA [None]
  - INSOMNIA [None]
  - MEMORY IMPAIRMENT [None]
  - NERVOUSNESS [None]
  - NIGHT SWEATS [None]
  - NIGHTMARE [None]
  - SENSORY DISTURBANCE [None]
  - SEXUAL DYSFUNCTION [None]
  - THYROID DISORDER [None]
  - VISUAL DISTURBANCE [None]
  - WEIGHT INCREASED [None]
